FAERS Safety Report 7724180-5 (Version None)
Quarter: 2011Q3

REPORT INFORMATION
  Report Type: 
  Country: None (occurrence: None)
  Receive Date: 20110901
  Receipt Date: 20110825
  Transmission Date: 20111222
  Serious: Yes (Death)
  Sender: FDA-Public Use
  Company Number: SE-ROCHE-798840

PATIENT
  Age: 69 Year
  Sex: Female

DRUGS (1)
  1. XELODA [Suspect]
     Dosage: DRUG: XELODA FILM COATED TABLET, DOSE: 3 GMD
     Route: 048
     Dates: start: 20110331, end: 20110421

REACTIONS (2)
  - INTESTINAL GANGRENE [None]
  - DIARRHOEA [None]
